FAERS Safety Report 19940649 (Version 1)
Quarter: 2021Q4

REPORT INFORMATION
  Report Type: Spontaneous
  Country: US (occurrence: US)
  Receive Date: 20211012
  Receipt Date: 20211012
  Transmission Date: 20220303
  Serious: No
  Sender: FDA-Public Use
  Company Number: US-DRREDDYS-SPO/USA/21/0142489

PATIENT
  Age: 68 Year
  Sex: Female

DRUGS (3)
  1. DONEPEZIL HYDROCHLORIDE [Suspect]
     Active Substance: DONEPEZIL HYDROCHLORIDE
     Indication: Vascular dementia
     Dosage: AT BEDTIME
  2. BUPROPION [Concomitant]
     Active Substance: BUPROPION
     Indication: Depression
     Dosage: EVERY MORNING
  3. BUPROPION [Concomitant]
     Active Substance: BUPROPION
     Dosage: EVERY MORNING

REACTIONS (1)
  - Sexually inappropriate behaviour [Recovered/Resolved]
